FAERS Safety Report 25189859 (Version 1)
Quarter: 2025Q2

REPORT INFORMATION
  Report Type: Report from Study
  Country: US (occurrence: US)
  Receive Date: 20250411
  Receipt Date: 20250411
  Transmission Date: 20250716
  Serious: Yes (Hospitalization, Other)
  Sender: EISAI
  Company Number: US-Eisai-EC-2025-187171

PATIENT
  Age: 75 Year
  Sex: Female

DRUGS (4)
  1. LENVIMA [Suspect]
     Active Substance: LENVATINIB
     Indication: Thyroid cancer
     Dates: start: 20240618, end: 20240627
  2. LENVIMA [Suspect]
     Active Substance: LENVATINIB
     Dates: start: 20240628, end: 20241017
  3. LENVIMA [Suspect]
     Active Substance: LENVATINIB
     Dates: start: 20241018, end: 20241129
  4. LENVIMA [Suspect]
     Active Substance: LENVATINIB
     Dates: start: 20241130

REACTIONS (3)
  - Constipation [Unknown]
  - Cerebrovascular accident [Unknown]
  - Pain [Not Recovered/Not Resolved]

NARRATIVE: CASE EVENT DATE: 20240801
